FAERS Safety Report 9696247 (Version 2)
Quarter: 2013Q4

REPORT INFORMATION
  Report Type: Spontaneous
  Country: GB (occurrence: GB)
  Receive Date: 20131119
  Receipt Date: 20131120
  Transmission Date: 20140711
  Serious: Yes (Life-Threatening, Hospitalization)
  Sender: FDA-Public Use
  Company Number: GB-SA-2013SA118220

PATIENT
  Age: 89 Year
  Sex: Male

DRUGS (4)
  1. CLOPIDOGREL BISULFATE [Suspect]
     Indication: CEREBROVASCULAR ACCIDENT PROPHYLAXIS
     Route: 048
     Dates: start: 20121129, end: 20131028
  2. PARACETAMOL [Concomitant]
     Indication: PAIN
  3. RANITIDINE [Concomitant]
     Indication: DRUG TOXICITY PROPHYLAXIS
     Dosage: TAKEN FOR GASTROINTESTINAL PROTECTION FROM CLOPIDOGREL
     Dates: end: 20131028
  4. METOCLOPRAMIDE [Concomitant]
     Indication: MALAISE
     Dates: end: 20131028

REACTIONS (2)
  - Melaena [Recovering/Resolving]
  - Constipation [Recovering/Resolving]
